FAERS Safety Report 9565949 (Version 1)
Quarter: 2013Q3

REPORT INFORMATION
  Report Type: Spontaneous
  Country: CH (occurrence: CH)
  Receive Date: 20130930
  Receipt Date: 20130930
  Transmission Date: 20140515
  Serious: Yes (Hospitalization)
  Sender: FDA-Public Use
  Company Number: CH-009507513-1309CHE012837

PATIENT
  Age: 78 Year
  Sex: Male
  Weight: 77.8 kg

DRUGS (7)
  1. REMERON [Suspect]
     Dosage: 30 MG, QD
     Route: 048
     Dates: start: 201307
  2. TRIATEC (RAMIPRIL) [Suspect]
     Dosage: 2.5 MG, QD
     Route: 048
  3. TRITTICO [Suspect]
     Dosage: UNK UNK, QD
     Route: 048
     Dates: end: 20130801
  4. PLAVIX [Concomitant]
     Dosage: 75 MG, QD
     Route: 048
  5. ATORVASTATIN [Concomitant]
     Dosage: 20 MG, QD
     Route: 048
  6. DALMADORM [Concomitant]
     Dosage: UNK, QD
     Route: 048
     Dates: start: 20130801
  7. MADOPAR [Concomitant]
     Dosage: 62.5/250MG
     Route: 048

REACTIONS (3)
  - Presyncope [Recovered/Resolved]
  - Orthostatic hypotension [Recovering/Resolving]
  - Asthenia [Recovering/Resolving]
